FAERS Safety Report 5094146-5 (Version None)
Quarter: 2006Q3

REPORT INFORMATION
  Report Type: 
  Country: None (occurrence: None)
  Receive Date: 20060831
  Receipt Date: 20060821
  Transmission Date: 20061208
  Serious: Yes (Other)
  Sender: FDA-Public Use
  Company Number: US-JNJFOC-20060805155

PATIENT
  Sex: Female
  Weight: 52.16 kg

DRUGS (5)
  1. TOPAMAX [Suspect]
     Indication: MIGRAINE PROPHYLAXIS
     Route: 048
  2. LEVOXIL [Concomitant]
     Indication: AUTOIMMUNE THYROIDITIS
     Route: 048
  3. FLEXERIL [Concomitant]
     Indication: MYALGIA
     Route: 048
  4. ACETAMINOPHEN [Concomitant]
     Indication: HEADACHE
     Route: 048
  5. PROPOXYPHENE NAPSYLATE [Concomitant]
     Indication: HEADACHE
     Route: 048

REACTIONS (2)
  - CEREBROVASCULAR INSUFFICIENCY [None]
  - CSF PROTEIN INCREASED [None]
